FAERS Safety Report 8164276-X (Version None)
Quarter: 2012Q1

REPORT INFORMATION
  Report Type: 
  Country: None (occurrence: None)
  Receive Date: 20120221
  Receipt Date: 20120203
  Transmission Date: 20120608
  Serious: Yes (Other)
  Sender: FDA-Public Use
  Company Number: 20120063

PATIENT
  Age: 46 Year
  Sex: Female
  Weight: 70 kg

DRUGS (8)
  1. VENTOLIN [Concomitant]
  2. CYMBALTA [Concomitant]
  3. VENOFER [Suspect]
     Dosage: IN 250 ML 0.9% NACL OVER 1 HOUR, INTRAVENOUS DRIP
     Route: 041
     Dates: start: 20100313
  4. CLOZAPINE [Concomitant]
  5. SERETIDE (FLUTICASONE/SALMETEROL) [Concomitant]
  6. SINGULAIR [Concomitant]
  7. FERROGRAD (FERROUS SULFATE) [Concomitant]
  8. OMEPRAZOLE [Concomitant]

REACTIONS (1)
  - ASTHMA [None]
